FAERS Safety Report 5069040-6 (Version None)
Quarter: 2006Q3

REPORT INFORMATION
  Report Type: 
  Country: None (occurrence: None)
  Receive Date: 20060728
  Receipt Date: 20060721
  Transmission Date: 20061208
  Serious: Yes (Hospitalization)
  Sender: FDA-Public Use
  Company Number: 200613100GDS

PATIENT
  Age: 76 Year
  Sex: Female

DRUGS (1)
  1. ASPIRIN [Suspect]
     Indication: ARTERIOSCLEROSIS OBLITERANS

REACTIONS (17)
  - ADHESION [None]
  - BACK PAIN [None]
  - BLOOD PRESSURE DECREASED [None]
  - CALCINOSIS [None]
  - CERVIX CARCINOMA [None]
  - DEPRESSED LEVEL OF CONSCIOUSNESS [None]
  - DISEASE RECURRENCE [None]
  - GENERAL PHYSICAL CONDITION ABNORMAL [None]
  - HAEMATOMA [None]
  - HYPERCALCAEMIA [None]
  - HYSTEROCELE [None]
  - PELVIC MASS [None]
  - SHUNT OCCLUSION [None]
  - SQUAMOUS CELL CARCINOMA [None]
  - UTERINE CANCER [None]
  - UTERINE ENLARGEMENT [None]
  - VAGINAL ATRESIA [None]
